FAERS Safety Report 18152068 (Version 1)
Quarter: 2020Q3

REPORT INFORMATION
  Report Type: Spontaneous
  Country: CN (occurrence: CN)
  Receive Date: 20200814
  Receipt Date: 20200814
  Transmission Date: 20201103
  Serious: Yes (Hospitalization, Disabling, Other)
  Sender: FDA-Public Use
  Company Number: CN-009507513-2008CHN004546

PATIENT
  Age: 66 Year
  Sex: Male
  Weight: 60 kg

DRUGS (13)
  1. TIENAM [Suspect]
     Active Substance: CILASTATIN SODIUM\IMIPENEM
     Indication: ABDOMINAL INFECTION
     Dosage: 0.5 G IVGTT Q6H
     Route: 041
     Dates: start: 20200708, end: 20200709
  2. SULPERAZONE [Suspect]
     Active Substance: CEFOPERAZONE SODIUM\SULBACTAM SODIUM
     Dosage: 2.0 G IVGTT Q8H
     Route: 041
     Dates: start: 20200709, end: 20200709
  3. CITICOLINE SODIUM [Concomitant]
     Active Substance: CITICOLINE SODIUM
     Indication: CEREBROVASCULAR DISORDER
     Dosage: 0.2G, NASAL FEEDING, TID
     Dates: start: 20200628, end: 20200713
  4. SODIUM CHLORIDE. [Concomitant]
     Active Substance: SODIUM CHLORIDE
     Dosage: 100 ML
     Dates: start: 20200708
  5. MEROPENEM. [Suspect]
     Active Substance: MEROPENEM
     Indication: ABDOMINAL INFECTION
     Dosage: 1 G IVGTT Q8H
     Route: 041
     Dates: start: 20200707, end: 20200708
  6. SODIUM CHLORIDE. [Concomitant]
     Active Substance: SODIUM CHLORIDE
     Dosage: 100 ML
     Dates: start: 20200703, end: 20200708
  7. INDOMETHACIN. [Concomitant]
     Active Substance: INDOMETHACIN
     Indication: FEBRILE INFECTION
     Dosage: UNK
     Dates: start: 20200702
  8. SODIUM CHLORIDE. [Concomitant]
     Active Substance: SODIUM CHLORIDE
     Dosage: 20 MILLIGRAM, BID
     Dates: start: 20200709
  9. SODIUM CHLORIDE. [Concomitant]
     Active Substance: SODIUM CHLORIDE
     Dosage: 100 ML
     Dates: start: 20200709, end: 20200709
  10. CALCIUM GLUCONATE. [Concomitant]
     Active Substance: CALCIUM GLUCONATE
     Dosage: 10 ML IVGTT QD
     Route: 041
     Dates: start: 20200725, end: 20200730
  11. SULPERAZONE [Suspect]
     Active Substance: CEFOPERAZONE SODIUM\SULBACTAM SODIUM
     Indication: PNEUMONIA ASPIRATION
     Dosage: 2.0 G IVGTT Q8H
     Route: 041
     Dates: start: 20200703, end: 20200707
  12. LORATADINE. [Concomitant]
     Active Substance: LORATADINE
     Indication: HYPERSENSITIVITY
     Dosage: 10 MG, NASAL FEEDING, QD
     Dates: start: 20200708, end: 20200709
  13. CALCIUM GLUCONATE. [Concomitant]
     Active Substance: CALCIUM GLUCONATE
     Dosage: 10 ML IVGTT BID
     Route: 041
     Dates: start: 20200708, end: 20200725

REACTIONS (6)
  - Pigmentation disorder [Recovering/Resolving]
  - Dermatitis exfoliative generalised [Recovering/Resolving]
  - Nausea [Unknown]
  - Adverse drug reaction [Recovering/Resolving]
  - Hypertension [Not Recovered/Not Resolved]
  - Cerebral haemorrhage [Not Recovered/Not Resolved]

NARRATIVE: CASE EVENT DATE: 202007
